FAERS Safety Report 11771525 (Version 1)
Quarter: 2015Q4

REPORT INFORMATION
  Report Type: Spontaneous
  Country: US (occurrence: None)
  Receive Date: 20151123
  Receipt Date: 20151123
  Transmission Date: 20160304
  Serious: Yes (Hospitalization, Other)
  Sender: FDA-Public Use
  Company Number: None

PATIENT
  Age: 80 Year
  Sex: Male
  Weight: 79.83 kg

DRUGS (10)
  1. LISINOPRIL. [Concomitant]
     Active Substance: LISINOPRIL
  2. PRADAXA [Suspect]
     Active Substance: DABIGATRAN ETEXILATE MESYLATE
     Indication: ATRIAL FLUTTER
     Dosage: 1 PILL
     Route: 048
     Dates: start: 20150813, end: 20150815
  3. ASPRIN [Concomitant]
     Active Substance: ASPIRIN
  4. MAGNISIUM [Concomitant]
  5. PRADAXA [Suspect]
     Active Substance: DABIGATRAN ETEXILATE MESYLATE
     Indication: ATRIAL FIBRILLATION
     Dosage: 1 PILL
     Route: 048
     Dates: start: 20150813, end: 20150815
  6. GLIPIZIDE. [Concomitant]
     Active Substance: GLIPIZIDE
  7. NIACIN. [Concomitant]
     Active Substance: NIACIN
  8. ELIQUIS [Concomitant]
     Active Substance: APIXABAN
  9. PRADAXA [Suspect]
     Active Substance: DABIGATRAN ETEXILATE MESYLATE
     Indication: CORONARY ARTERY DISEASE
     Dosage: 1 PILL
     Route: 048
     Dates: start: 20150813, end: 20150815
  10. PRAVASTATIN [Concomitant]
     Active Substance: PRAVASTATIN\PRAVASTATIN SODIUM

REACTIONS (5)
  - Bone marrow failure [None]
  - Pyrexia [None]
  - Thrombocytopenia [None]
  - Leukopenia [None]
  - Chills [None]

NARRATIVE: CASE EVENT DATE: 20150813
